FAERS Safety Report 10171348 (Version 1)
Quarter: 2014Q2

REPORT INFORMATION
  Report Type: Spontaneous
  Country: US (occurrence: None)
  Receive Date: 20140513
  Receipt Date: 20140513
  Transmission Date: 20141212
  Serious: Yes (Disabling)
  Sender: FDA-Public Use
  Company Number: None

PATIENT
  Age: 17 Year
  Sex: Male
  Weight: 55.34 kg

DRUGS (1)
  1. AMPHETAMINE DEXTROAMPHETAMINE XR [Suspect]
     Indication: ATTENTION DEFICIT/HYPERACTIVITY DISORDER
     Dosage: 1 PO Q AM?1 PO Q PM
     Route: 048
     Dates: start: 201401

REACTIONS (5)
  - Attention deficit/hyperactivity disorder [None]
  - Mood altered [None]
  - Product substitution issue [None]
  - Economic problem [None]
  - Condition aggravated [None]
